FAERS Safety Report 14265139 (Version 3)
Quarter: 2018Q1

REPORT INFORMATION
  Report Type: Spontaneous
  Country: US (occurrence: US)
  Receive Date: 20171208
  Receipt Date: 20180323
  Transmission Date: 20180508
  Serious: Yes (Hospitalization)
  Sender: FDA-Public Use
  Company Number: US-PTC THERAPEUTICS, INC.-US-2017PTC000124

PATIENT

DRUGS (1)
  1. EMFLAZA [Suspect]
     Active Substance: DEFLAZACORT
     Indication: DUCHENNE MUSCULAR DYSTROPHY
     Dosage: 0.7 ML, QD
     Route: 048
     Dates: start: 20170621

REACTIONS (5)
  - Liver function test increased [Recovered/Resolved]
  - Irritability [Not Recovered/Not Resolved]
  - Anger [Recovered/Resolved]
  - Mood swings [Unknown]
  - Aggression [Unknown]

NARRATIVE: CASE EVENT DATE: 201707
